FAERS Safety Report 5091559-2 (Version None)
Quarter: 2006Q3

REPORT INFORMATION
  Report Type: 
  Country: None (occurrence: None)
  Receive Date: 20060824
  Receipt Date: 20060809
  Transmission Date: 20061208
  Serious: Yes (Death)
  Sender: FDA-Public Use
  Company Number: 2006S1006679

PATIENT
  Age: 19 Year
  Sex: Male
  Weight: 78.9259 kg

DRUGS (3)
  1. FENTANYL TRANSDERMAL SYSTEM [Suspect]
     Dates: end: 20051101
  2. ALPRAZOLAM [Concomitant]
  3. METHYLPHENIDATE HCL [Concomitant]

REACTIONS (2)
  - DRUG TOXICITY [None]
  - SELF-MEDICATION [None]
